FAERS Safety Report 10265488 (Version 1)
Quarter: 2014Q2

REPORT INFORMATION
  Report Type: Spontaneous
  Country: US (occurrence: US)
  Receive Date: 20140627
  Receipt Date: 20140627
  Transmission Date: 20141212
  Serious: Yes (Other)
  Sender: FDA-Public Use
  Company Number: US-PFIZER INC-2014173870

PATIENT
  Age: 55 Year
  Sex: Female
  Weight: 64 kg

DRUGS (4)
  1. LYRICA [Suspect]
     Indication: FIBROMYALGIA
     Dosage: 200 MG, 3X/DAY
  2. CELEBREX [Suspect]
     Dosage: UNK
  3. GENOTROPIN [Suspect]
     Dosage: UNK
  4. PLAQUENIL [Concomitant]
     Indication: LUPUS-LIKE SYNDROME
     Dosage: 200 MG, 2X/DAY

REACTIONS (5)
  - Cerebrovascular accident [Unknown]
  - Cardiac arrest [Unknown]
  - Blindness transient [Unknown]
  - Arterial occlusive disease [Unknown]
  - Amnesia [Unknown]
